FAERS Safety Report 18067222 (Version 3)
Quarter: 2020Q3

REPORT INFORMATION
  Report Type: Spontaneous
  Country: FR (occurrence: FR)
  Receive Date: 20200724
  Receipt Date: 20200828
  Transmission Date: 20201103
  Serious: Yes (Hospitalization, Other)
  Sender: FDA-Public Use
  Company Number: FR-PFIZER INC-2020-07765

PATIENT
  Age: 50 Year
  Sex: Female
  Weight: 62 kg

DRUGS (6)
  1. IPILIMUMAB [Concomitant]
     Active Substance: IPILIMUMAB
     Indication: METASTATIC MALIGNANT MELANOMA
     Dosage: 63 MG, EVERY 3 WEEKS
     Route: 042
     Dates: start: 20191104
  2. NIVOLUMAB [Concomitant]
     Active Substance: NIVOLUMAB
     Indication: METASTATIC MALIGNANT MELANOMA
     Dosage: 163 MG
     Route: 042
     Dates: start: 20191104
  3. MEKTOVI [Suspect]
     Active Substance: BINIMETINIB
     Indication: METASTATIC MALIGNANT MELANOMA
     Dosage: 45 MG, 2X/DAY
     Route: 048
     Dates: start: 20200114, end: 20200402
  4. BRAFTOVI [Suspect]
     Active Substance: ENCORAFENIB
     Indication: METASTATIC MALIGNANT MELANOMA
     Dosage: 450 MG, 1X/DAY
     Route: 048
     Dates: start: 20200114, end: 20200402
  5. MEKTOVI [Suspect]
     Active Substance: BINIMETINIB
     Dosage: 45 MG, 2X/DAY
     Route: 048
     Dates: start: 20200404, end: 20200406
  6. BRAFTOVI [Suspect]
     Active Substance: ENCORAFENIB
     Dosage: 300 MG, 1X/DAY
     Route: 048
     Dates: start: 20200404, end: 20200406

REACTIONS (6)
  - Colitis [Recovered/Resolved]
  - Hypokalaemia [Unknown]
  - Vomiting [Unknown]
  - Diarrhoea [Recovered/Resolved]
  - Off label use [Unknown]
  - Abdominal pain [Unknown]

NARRATIVE: CASE EVENT DATE: 20200406
